FAERS Safety Report 8003732-1 (Version None)
Quarter: 2011Q4

REPORT INFORMATION
  Report Type: 
  Country: None (occurrence: None)
  Receive Date: 20111222
  Receipt Date: 20111215
  Transmission Date: 20120403
  Serious: Yes (Death)
  Sender: FDA-Public Use
  Company Number: DE-TEVA-313680GER

PATIENT
  Age: 68 Year
  Sex: Female
  Weight: 62 kg

DRUGS (2)
  1. IBUPROFEN [Suspect]
     Indication: METASTATIC PAIN
     Route: 048
     Dates: end: 20110629
  2. NOVALGIN [Concomitant]
     Indication: PAIN
     Route: 048
     Dates: end: 20110701

REACTIONS (5)
  - COMA HEPATIC [None]
  - PROTEIN-LOSING GASTROENTEROPATHY [None]
  - HEPATIC ENCEPHALOPATHY [None]
  - HEPATIC FAILURE [None]
  - CHOLESTASIS [None]
